FAERS Safety Report 10328571 (Version 1)
Quarter: 2014Q3

REPORT INFORMATION
  Report Type: Spontaneous
  Country: US (occurrence: US)
  Receive Date: 20140721
  Receipt Date: 20140721
  Transmission Date: 20150326
  Serious: No
  Sender: FDA-Public Use
  Company Number: US-ASTRAZENECA-2014SE50031

PATIENT
  Age: 19728 Day
  Sex: Female
  Weight: 64.4 kg

DRUGS (5)
  1. HYDROCODONE THERAPY [Concomitant]
     Indication: NERVE INJURY
     Dosage: 10-325 MG Q6H
     Route: 048
     Dates: start: 2013
  2. HUMULIN N [Concomitant]
     Active Substance: INSULIN HUMAN
     Indication: DIABETES MELLITUS
     Dosage: 15 ,DAILY
     Route: 058
     Dates: start: 1997
  3. NEXIUM [Suspect]
     Active Substance: ESOMEPRAZOLE MAGNESIUM
     Indication: GASTRITIS
     Dosage: ?
     Route: 048
     Dates: start: 20140705, end: 20140708
  4. NEXIUM [Suspect]
     Active Substance: ESOMEPRAZOLE MAGNESIUM
     Indication: HELICOBACTER INFECTION
     Dosage: ?
     Route: 048
     Dates: start: 20140705, end: 20140708
  5. ST JOHNS WORT [Concomitant]
     Indication: BRAIN OPERATION
     Dosage: UNKNOWN QD
     Dates: start: 2012

REACTIONS (3)
  - Swelling [Unknown]
  - Adverse event [Unknown]
  - Dyspnoea [Unknown]

NARRATIVE: CASE EVENT DATE: 20140706
